FAERS Safety Report 23187179 (Version 3)
Quarter: 2024Q1

REPORT INFORMATION
  Report Type: Report from Study
  Country: AR (occurrence: AR)
  Receive Date: 20231115
  Receipt Date: 20240215
  Transmission Date: 20240409
  Serious: Yes (Other)
  Sender: FDA-Public Use
  Company Number: AR-JNJFOC-20230531861

PATIENT
  Age: 66 Year
  Sex: Male
  Weight: 70 kg

DRUGS (1)
  1. SIMPONI [Suspect]
     Active Substance: GOLIMUMAB
     Indication: Rheumatoid arthritis
     Dosage: 200 CIRCUMSTANTIALLY
     Route: 041
     Dates: start: 20230418

REACTIONS (8)
  - Spinal cord injury [Not Recovered/Not Resolved]
  - Brain stem syndrome [Unknown]
  - Rheumatoid arthritis [Not Recovered/Not Resolved]
  - Thyroid disorder [Not Recovered/Not Resolved]
  - Neoplasm [Not Recovered/Not Resolved]
  - Limb discomfort [Recovering/Resolving]
  - Product dose omission issue [Unknown]
  - Off label use [Unknown]
